FAERS Safety Report 7788087-X (Version None)
Quarter: 2011Q3

REPORT INFORMATION
  Report Type: 
  Country: None (occurrence: None)
  Receive Date: 20110927
  Receipt Date: 20110913
  Transmission Date: 20111222
  Serious: Yes (Hospitalization)
  Sender: FDA-Public Use
  Company Number: 1042582

PATIENT
  Age: 44 Year
  Sex: Female

DRUGS (1)
  1. DOCETAXEL [Suspect]
     Indication: BREAST CANCER
     Dosage: 120 MG MILLIGRAM(S), INTRAVENOUS
     Route: 042
     Dates: start: 20110215, end: 20110215

REACTIONS (4)
  - EYELID DISORDER [None]
  - PERIORBITAL OEDEMA [None]
  - ERYTHEMA [None]
  - HERPES OPHTHALMIC [None]
